FAERS Safety Report 14246352 (Version 1)
Quarter: 2017Q4

REPORT INFORMATION
  Report Type: Spontaneous
  Country: US (occurrence: None)
  Receive Date: 20171201
  Receipt Date: 20171201
  Transmission Date: 20180321
  Serious: Yes (Hospitalization)
  Sender: FDA-Public Use
  Company Number: None

PATIENT
  Age: 54 Year
  Sex: Female
  Weight: 131 kg

DRUGS (20)
  1. ACETAMINOPHEN. [Concomitant]
     Active Substance: ACETAMINOPHEN
  2. INSULIN LISPRO [Concomitant]
     Active Substance: INSULIN LISPRO
  3. GLUCAGON. [Concomitant]
     Active Substance: GLUCAGON
  4. LASIX [Concomitant]
     Active Substance: FUROSEMIDE
  5. ASPIRIN. [Concomitant]
     Active Substance: ASPIRIN
  6. DEXTROSE. [Concomitant]
     Active Substance: DEXTROSE
  7. DOCUSATE-SENNA [Concomitant]
  8. FAMOTIDINE. [Concomitant]
     Active Substance: FAMOTIDINE
  9. HEPARIN [Concomitant]
     Active Substance: HEPARIN SODIUM
  10. SERTRALINE [Concomitant]
     Active Substance: SERTRALINE HYDROCHLORIDE
  11. LEVETIRACETAM. [Concomitant]
     Active Substance: LEVETIRACETAM
  12. SPIRONOLACTONE. [Concomitant]
     Active Substance: SPIRONOLACTONE
  13. ZEPATIER [Suspect]
     Active Substance: ELBASVIR\GRAZOPREVIR
     Indication: HEPATITIS C
     Dosage: ONE TABALET DAILY PO
     Route: 048
     Dates: start: 20170428, end: 20170721
  14. ATORVASTATIN [Concomitant]
     Active Substance: ATORVASTATIN
  15. MIRALAX [Concomitant]
     Active Substance: POLYETHYLENE GLYCOL 3350
  16. ACETAMINOPHEN-HYDROCODONE [Concomitant]
     Active Substance: ACETAMINOPHEN\HYDROCODONE
  17. DEXAMETHASONE. [Concomitant]
     Active Substance: DEXAMETHASONE
  18. POTASSIUM PHOSPHATE-SODIUM PHOSPHATE [Concomitant]
  19. HYDRALAZINE [Concomitant]
     Active Substance: HYDRALAZINE HYDROCHLORIDE
  20. LABETALOL [Concomitant]
     Active Substance: LABETALOL\LABETALOL HYDROCHLORIDE

REACTIONS (2)
  - Intracranial mass [None]
  - Cerebrovascular accident [None]

NARRATIVE: CASE EVENT DATE: 20171015
